FAERS Safety Report 6339555-9 (Version None)
Quarter: 2009Q3

REPORT INFORMATION
  Report Type: 
  Country: None (occurrence: None)
  Receive Date: 20090903
  Receipt Date: 20090831
  Transmission Date: 20100115
  Serious: Yes (Hospitalization)
  Sender: FDA-Public Use
  Company Number: IT-AMGEN-UK362331

PATIENT
  Sex: Female

DRUGS (3)
  1. ROMIPLOSTIM [Suspect]
     Indication: IDIOPATHIC THROMBOCYTOPENIC PURPURA
     Route: 058
     Dates: start: 20090213
  2. ROMIPLOSTIM - STUDY PROCEDURE [Suspect]
  3. VITAMIN B6 [Suspect]

REACTIONS (1)
  - HAEMORRHAGE [None]
